FAERS Safety Report 5892684-6 (Version None)
Quarter: 2008Q3

REPORT INFORMATION
  Report Type: 
  Country: None (occurrence: None)
  Receive Date: 20080923
  Receipt Date: 20080916
  Transmission Date: 20090109
  Serious: Yes (Other)
  Sender: FDA-Public Use
  Company Number: PHHY2008BR16467

PATIENT
  Sex: Male

DRUGS (6)
  1. TEGRETOL [Suspect]
     Indication: EPILEPSY
     Dosage: 200 MG, TID
     Route: 048
  2. VALPROIC ACID [Concomitant]
  3. FRISIUM [Concomitant]
  4. TOPAMAX [Concomitant]
  5. GARDENAL ^AVENTIS^ [Concomitant]
  6. RIVOTRIL [Concomitant]

REACTIONS (5)
  - HALLUCINATION [None]
  - LOSS OF CONSCIOUSNESS [None]
  - MEMORY IMPAIRMENT [None]
  - NERVOUSNESS [None]
  - PETIT MAL EPILEPSY [None]
